FAERS Safety Report 23790634 (Version 1)
Quarter: 2024Q2

REPORT INFORMATION
  Report Type: Spontaneous
  Country: BG (occurrence: BG)
  Receive Date: 20240427
  Receipt Date: 20240427
  Transmission Date: 20240715
  Serious: Yes (Hospitalization, Other)
  Sender: FDA-Public Use
  Company Number: BG-Accord-420460

PATIENT
  Age: 76 Year
  Sex: Male

DRUGS (4)
  1. HYDROCHLOROTHIAZIDE [Suspect]
     Active Substance: HYDROCHLOROTHIAZIDE
     Indication: Hypertension
     Dosage: 12.5 MG ?ADMINISTRATED ONCE IN THE MORNING FOR THE PAST 10 YEARS.
  2. BISOPROLOL [Suspect]
     Active Substance: BISOPROLOL\BISOPROLOL FUMARATE
     Indication: Hypertension
     Dosage: HALF A ?TABLET TWICE DAILY
  3. VALSARTAN [Suspect]
     Active Substance: VALSARTAN
     Indication: Hypertension
     Dosage: 160 MG ONCE DAILY IN ?THE MORNING
  4. ASPIRIN [Concomitant]
     Active Substance: ASPIRIN
     Dosage: ONCE ?AT NIGHT

REACTIONS (1)
  - Nodular melanoma [Recovered/Resolved]
